FAERS Safety Report 7951122-X (Version None)
Quarter: 2011Q4

REPORT INFORMATION
  Report Type: 
  Country: None (occurrence: None)
  Receive Date: 20111125
  Receipt Date: 20111116
  Transmission Date: 20120403
  Serious: Yes (Other)
  Sender: FDA-Public Use
  Company Number: DSA_48225_2011

PATIENT
  Sex: Female

DRUGS (1)
  1. NIFEDICAL XL EXTENDED-RELEASE TABLETS 60 MG [Suspect]
     Indication: HYPERTENSION
     Dosage: (60 MG, FREQUENCY UNKNOWN)

REACTIONS (3)
  - PRODUCT SUBSTITUTION ISSUE [None]
  - BLOOD PRESSURE INCREASED [None]
  - DRUG EFFECT DECREASED [None]
